FAERS Safety Report 9916990 (Version 1)
Quarter: 2014Q1

REPORT INFORMATION
  Report Type: Spontaneous
  Country: TR (occurrence: TR)
  Receive Date: 20140221
  Receipt Date: 20140221
  Transmission Date: 20141002
  Serious: Yes (Hospitalization, Other)
  Sender: FDA-Public Use
  Company Number: TR-WATSON-2014-02658

PATIENT
  Age: 16 Year
  Sex: Female

DRUGS (1)
  1. HALOPERIDOL (UNKNOWN) [Suspect]
     Indication: PRODUCT USED FOR UNKNOWN INDICATION
     Dosage: UNK
     Route: 048

REACTIONS (7)
  - Atrioventricular block [Recovered/Resolved]
  - Electrocardiogram QT prolonged [Recovered/Resolved]
  - Musculoskeletal stiffness [Unknown]
  - Hyperreflexia [Unknown]
  - Opisthotonus [Recovered/Resolved]
  - Dysarthria [Recovered/Resolved]
  - Clonus [Recovered/Resolved]
